FAERS Safety Report 5121332-8 (Version None)
Quarter: 2006Q4

REPORT INFORMATION
  Report Type: 
  Country: None (occurrence: None)
  Receive Date: 20061002
  Receipt Date: 20060922
  Transmission Date: 20070319
  Serious: Yes (Death, Hospitalization)
  Sender: FDA-Public Use
  Company Number: 2006109040

PATIENT
  Age: 58 Year
  Sex: Female
  Weight: 63.5 kg

DRUGS (12)
  1. SUTENT [Suspect]
     Indication: RENAL CELL CARCINOMA STAGE UNSPECIFIED
     Dosage: 37.5 MG (37.5 MG, EVERY DAY FOR 4 WEEKS ON, 2 OFF), ORAL
     Route: 048
     Dates: start: 20060524
  2. ALL OTHER THERAPEUTIC PRODUCTS (ALL OTHER THERAPEUTIC PRODUCTS) [Concomitant]
  3. DICLOFENAC SODIUM [Concomitant]
  4. DEXTROPROPOXYPHENE (DEXTROPROPOXYPHENE) [Concomitant]
  5. IBUPROFEN [Concomitant]
  6. DEXAMETHASONE TAB [Concomitant]
  7. ENALAPRIL MALEATE [Concomitant]
  8. TRAMADOL HCL [Concomitant]
  9. LEVOFLOXACIN [Concomitant]
  10. OXYCODONE HCL [Concomitant]
  11. MEPREDNISONE (MEPREDNISONE) [Concomitant]
  12. AMOXICILLIN [Concomitant]

REACTIONS (18)
  - ANAEMIA [None]
  - BACK PAIN [None]
  - BACTERIAL INFECTION [None]
  - ERYTHEMA [None]
  - FISTULA [None]
  - INADEQUATE ANALGESIA [None]
  - INDURATION [None]
  - ISCHAEMIC STROKE [None]
  - MULTI-ORGAN FAILURE [None]
  - NECROTISING FASCIITIS [None]
  - PERIRENAL HAEMATOMA [None]
  - PNEUMOPERITONEUM [None]
  - RENAL ABSCESS [None]
  - RENAL FAILURE ACUTE [None]
  - SOFT TISSUE DISORDER [None]
  - SUBCUTANEOUS EMPHYSEMA [None]
  - THROMBOCYTOPENIA [None]
  - TUMOUR NECROSIS [None]
